FAERS Safety Report 10395878 (Version 1)
Quarter: 2014Q3

REPORT INFORMATION
  Report Type: Report from Study
  Country: US (occurrence: US)
  Receive Date: 20140820
  Receipt Date: 20140820
  Transmission Date: 20150326
  Serious: Yes (Other)
  Sender: FDA-Public Use
  Company Number: US-ABBVIE-14K-163-1271617-00

PATIENT
  Sex: Female
  Weight: 94.89 kg

DRUGS (10)
  1. CYMBALTA [Concomitant]
     Active Substance: DULOXETINE HYDROCHLORIDE
     Indication: PAIN
  2. NUCYNTA [Concomitant]
     Active Substance: TAPENTADOL HYDROCHLORIDE
     Indication: PAIN
  3. OMEPRAZOLE. [Concomitant]
     Active Substance: OMEPRAZOLE
     Indication: GASTROOESOPHAGEAL REFLUX DISEASE
  4. UNKNOWN COMPOUND [Concomitant]
     Indication: PAIN
  5. LIDODERM [Concomitant]
     Active Substance: LIDOCAINE
     Indication: PAIN
  6. VOLTAREN [Concomitant]
     Active Substance: DICLOFENAC SODIUM
     Indication: PAIN
  7. HUMIRA [Suspect]
     Active Substance: ADALIMUMAB
     Indication: RHEUMATOID ARTHRITIS
     Route: 058
     Dates: start: 2012, end: 201302
  8. COUGH MEDICINE [Suspect]
     Active Substance: UNSPECIFIED INGREDIENT
     Indication: COUGH
     Dates: start: 201301, end: 2013
  9. KLONOPIN [Concomitant]
     Active Substance: CLONAZEPAM
     Indication: RESTLESS LEGS SYNDROME
  10. TOPAMAX [Concomitant]
     Active Substance: TOPIRAMATE
     Indication: MIGRAINE

REACTIONS (11)
  - Cough [Recovered/Resolved]
  - Skin infection [Recovering/Resolving]
  - Drug hypersensitivity [Unknown]
  - Drug ineffective [Unknown]
  - Dysphonia [Recovered/Resolved]
  - Rash [Recovering/Resolving]
  - Rotator cuff syndrome [Recovered/Resolved]
  - Tendon rupture [Recovered/Resolved]
  - Tendon rupture [Recovered/Resolved]
  - Aphasia [Recovered/Resolved]
  - Dermatitis contact [Unknown]

NARRATIVE: CASE EVENT DATE: 2013
